FAERS Safety Report 6899891-4 (Version None)
Quarter: 2010Q3

REPORT INFORMATION
  Report Type: 
  Country: None (occurrence: None)
  Receive Date: 20100803
  Receipt Date: 20080201
  Transmission Date: 20110219
  Serious: Yes (Other)
  Sender: FDA-Public Use
  Company Number: US-PFIZER INC-2007048935

PATIENT
  Sex: Male
  Weight: 83.9 kg

DRUGS (4)
  1. LYRICA [Suspect]
     Indication: HERPES ZOSTER
     Dates: start: 20070601
  2. LYRICA [Suspect]
     Indication: PAIN
  3. NEURONTIN [Suspect]
  4. LORTAB [Suspect]
     Dates: start: 20070401

REACTIONS (2)
  - DRUG INEFFECTIVE [None]
  - PAIN [None]
